FAERS Safety Report 7206814-7 (Version None)
Quarter: 2010Q4

REPORT INFORMATION
  Report Type: 
  Country: None (occurrence: None)
  Receive Date: 20101217
  Receipt Date: 20101202
  Transmission Date: 20110411
  Serious: Yes (Life-Threatening, Hospitalization)
  Sender: FDA-Public Use
  Company Number: 1000017238

PATIENT
  Age: 75 Year
  Sex: Female

DRUGS (3)
  1. MEMANTINE HCL [Suspect]
     Indication: DEMENTIA
     Dosage: 10 MG (10 MG, 1 IN 1 D), ORAL
     Route: 048
     Dates: start: 20100520, end: 20100609
  2. MEMANTINE [Suspect]
     Indication: DEMENTIA
     Dosage: (20 MG (20 MG, 1 IN 1 D), ORAL) (20 MG (20 MG, 1 IN 1 D), ORAL)
     Route: 048
     Dates: start: 20100610
  3. ASPIRIN [Concomitant]

REACTIONS (4)
  - CEREBRAL HAEMORRHAGE [None]
  - CONFUSIONAL STATE [None]
  - DISORIENTATION [None]
  - HEADACHE [None]
